FAERS Safety Report 7538190-4 (Version None)
Quarter: 2011Q2

REPORT INFORMATION
  Report Type: 
  Country: None (occurrence: None)
  Receive Date: 20110609
  Receipt Date: 20110607
  Transmission Date: 20111010
  Serious: Yes (Other)
  Sender: FDA-Public Use
  Company Number: US-PFIZER INC-2011098480

PATIENT
  Sex: Female
  Weight: 72.562 kg

DRUGS (7)
  1. CHANTIX [Suspect]
     Indication: SMOKING CESSATION THERAPY
     Dosage: 0.5 MG, DAILY
     Route: 048
     Dates: start: 20110504, end: 20110512
  2. RITALIN [Concomitant]
     Indication: DEPRESSION
     Dosage: 10 MG, DAILY
     Route: 048
  3. LAMOTRIGINE [Concomitant]
     Indication: MOOD SWINGS
     Dosage: 150 MG, DAILY
  4. TEMPO TAB [Concomitant]
     Dosage: UNK, 3X/DAY
  5. LAMOTRIGINE [Concomitant]
     Indication: BIPOLAR DISORDER
  6. LEXAPRO [Concomitant]
     Indication: DEPRESSION
     Dosage: 10 MG, DAILY
     Route: 048
  7. KLONOPIN [Concomitant]
     Indication: ANXIETY
     Dosage: 1 MG, DAILY
     Route: 048

REACTIONS (3)
  - MORBID THOUGHTS [None]
  - SUICIDAL IDEATION [None]
  - DEPRESSION [None]
